FAERS Safety Report 4563830-1 (Version None)
Quarter: 2005Q1

REPORT INFORMATION
  Report Type: 
  Country: None (occurrence: None)
  Receive Date: 20050125
  Receipt Date: 20050110
  Transmission Date: 20050727
  Serious: No
  Sender: FDA-Public Use
  Company Number: DEU-2004-0001148

PATIENT
  Age: 51 Year
  Sex: Male

DRUGS (3)
  1. PALLADONE [Suspect]
     Indication: PAIN
     Dosage: 32 MG BID ORAL
     Route: 048
     Dates: start: 20040701
  2. HYDROMORPHONE HYDROCHLORIDE [Suspect]
     Indication: PAIN
     Dosage: 2.6 MG PM ORAL
     Route: 048
     Dates: start: 20040701
  3. PANTOPRAZOLE SODIUM [Concomitant]

REACTIONS (3)
  - BREAST PAIN [None]
  - DYSPNOEA [None]
  - GYNAECOMASTIA [None]
